FAERS Safety Report 7621668-2 (Version None)
Quarter: 2011Q3

REPORT INFORMATION
  Report Type: 
  Country: None (occurrence: None)
  Receive Date: 20110719
  Receipt Date: 20110707
  Transmission Date: 20111222
  Serious: Yes (Hospitalization)
  Sender: FDA-Public Use
  Company Number: US-CELGENEUS-163-50794-11070672

PATIENT
  Sex: Male
  Weight: 83.9 kg

DRUGS (7)
  1. AZITHROMYCIN [Concomitant]
     Dosage: 250 MILLIGRAM
     Route: 065
  2. VIDAZA [Suspect]
     Indication: DIFFUSE LARGE B-CELL LYMPHOMA
     Dosage: 75 MILLIGRAM/SQ. METER
     Route: 065
     Dates: start: 20110627
  3. DOCUSATE SODIUM [Concomitant]
     Dosage: 100 MILLIGRAM
     Route: 065
  4. LOVENOX [Concomitant]
     Dosage: 80MG/0.8ML
     Route: 065
  5. ETHAMBUTOL HYDROCHLORIDE [Concomitant]
     Route: 065
  6. VORINOSTAT [Suspect]
     Indication: DIFFUSE LARGE B-CELL LYMPHOMA
     Dosage: 200 MILLIGRAM
     Route: 065
     Dates: start: 20110627
  7. ESOMEPRAZOLE MAGNESIUM [Concomitant]
     Dosage: 40 MILLIGRAM
     Route: 065

REACTIONS (1)
  - MENTAL STATUS CHANGES [None]
